FAERS Safety Report 5049774-X (Version None)
Quarter: 2006Q3

REPORT INFORMATION
  Report Type: 
  Country: None (occurrence: None)
  Receive Date: 20060707
  Receipt Date: 20060627
  Transmission Date: 20061208
  Serious: Yes (Death)
  Sender: FDA-Public Use
  Company Number: 163-21880-06050472

PATIENT
  Age: 61 Year
  Sex: Male

DRUGS (10)
  1. REVLIMID [Suspect]
     Indication: ANAEMIA
     Dosage: 10 MG, 1 IN 1 D, ORAL; 5 MG, 1 IN 1 D, ORAL
     Route: 048
     Dates: start: 20060101, end: 20060101
  2. REVLIMID [Suspect]
     Indication: MYELODYSPLASTIC SYNDROME
     Dosage: 10 MG, 1 IN 1 D, ORAL; 5 MG, 1 IN 1 D, ORAL
     Route: 048
     Dates: start: 20060101, end: 20060101
  3. REVLIMID [Suspect]
     Indication: ANAEMIA
     Dosage: 10 MG, 1 IN 1 D, ORAL; 5 MG, 1 IN 1 D, ORAL
     Route: 048
     Dates: start: 20060413, end: 20060421
  4. REVLIMID [Suspect]
     Indication: MYELODYSPLASTIC SYNDROME
     Dosage: 10 MG, 1 IN 1 D, ORAL; 5 MG, 1 IN 1 D, ORAL
     Route: 048
     Dates: start: 20060413, end: 20060421
  5. ASPIRIN [Concomitant]
  6. EXJADE [Concomitant]
  7. LISINOPRIL [Concomitant]
  8. COUMADIN [Concomitant]
  9. PRILOSEC [Concomitant]
  10. HYDROXYZINE [Concomitant]

REACTIONS (9)
  - CONFUSIONAL STATE [None]
  - ENTEROBACTER INFECTION [None]
  - HYPERTENSION [None]
  - NEUTROPENIA [None]
  - PANCYTOPENIA [None]
  - PHARYNGEAL ULCERATION [None]
  - SEPSIS [None]
  - SPUTUM CULTURE POSITIVE [None]
  - STOMATITIS [None]
